FAERS Safety Report 5365437-5 (Version None)
Quarter: 2007Q2

REPORT INFORMATION
  Report Type: 
  Country: None (occurrence: None)
  Receive Date: 20070530
  Receipt Date: 20070115
  Transmission Date: 20071010
  Serious: No
  Sender: FDA-Public Use
  Company Number: 2007PV028451

PATIENT
  Age: 60 Year
  Sex: Female

DRUGS (7)
  1. BYETTA [Suspect]
     Indication: DIABETES MELLITUS NON-INSULIN-DEPENDENT
     Dosage: 10 MCG; BID; SC; 5 MCG; BID; SC
     Route: 058
     Dates: start: 20060801, end: 20060901
  2. BYETTA [Suspect]
     Indication: DIABETES MELLITUS NON-INSULIN-DEPENDENT
     Dosage: 10 MCG; BID; SC; 5 MCG; BID; SC
     Route: 058
     Dates: start: 20060901, end: 20061001
  3. AVANDIA [Concomitant]
  4. AMARYL [Concomitant]
  5. AMARYL [Concomitant]
  6. HUMULIN N [Concomitant]
  7. HUMULIN N [Concomitant]

REACTIONS (4)
  - ANOREXIA [None]
  - BLOOD GLUCOSE INCREASED [None]
  - NASOPHARYNGITIS [None]
  - NAUSEA [None]
